FAERS Safety Report 5651261-2 (Version None)
Quarter: 2008Q1

REPORT INFORMATION
  Report Type: 
  Country: None (occurrence: None)
  Receive Date: 20080131
  Receipt Date: 20071012
  Transmission Date: 20080703
  Serious: No
  Sender: FDA-Public Use
  Company Number: US200710003300

PATIENT
  Age: 73 Year
  Sex: Female

DRUGS (2)
  1. BYETTA [Suspect]
     Indication: HUNGER
     Dosage: 5 UG, 2/D, SUBCUTANEOUS
     Route: 058
     Dates: start: 20071011
  2. LANTUS [Concomitant]

REACTIONS (3)
  - BLOOD GLUCOSE DECREASED [None]
  - DECREASED APPETITE [None]
  - TREMOR [None]
